FAERS Safety Report 15045042 (Version 1)
Quarter: 2018Q2

REPORT INFORMATION
  Report Type: Spontaneous
  Country: US (occurrence: US)
  Receive Date: 20180601
  Receipt Date: 20180601
  Transmission Date: 20180711
  Serious: Yes (Hospitalization)
  Sender: FDA-Public Use
  Company Number: None

PATIENT
  Age: 58 Year
  Sex: Female

DRUGS (1)
  1. COPAXONE [Suspect]
     Active Substance: GLATIRAMER ACETATE

REACTIONS (6)
  - Pain in jaw [None]
  - Hypertension [None]
  - Ear pain [None]
  - Chest pain [None]
  - Myocardial infarction [None]
  - Drug dose omission [None]

NARRATIVE: CASE EVENT DATE: 20180503
